FAERS Safety Report 8515910-3 (Version None)
Quarter: 2012Q3

REPORT INFORMATION
  Report Type: 
  Country: None (occurrence: None)
  Receive Date: 20120717
  Receipt Date: 20120703
  Transmission Date: 20120928
  Serious: No
  Sender: FDA-Public Use
  Company Number: US-ASTRAZENECA-2012SE45292

PATIENT
  Age: 88 Year
  Sex: Male

DRUGS (6)
  1. SYMBICORT [Suspect]
     Indication: CHRONIC OBSTRUCTIVE PULMONARY DISEASE
     Dosage: TWO TIMES A DAY
     Route: 055
  2. PREDNISONE [Concomitant]
     Route: 048
  3. HYDROCHLOROTHIAZIDE [Concomitant]
  4. ISOSORBIDE [Concomitant]
     Route: 048
  5. LISINOPRIL [Concomitant]
  6. POTASSIUM CHLORIDE [Concomitant]

REACTIONS (1)
  - DYSPNOEA [None]
